FAERS Safety Report 11595012 (Version 5)
Quarter: 2019Q2

REPORT INFORMATION
  Report Type: Spontaneous
  Country: US (occurrence: US)
  Receive Date: 20151005
  Receipt Date: 20190423
  Transmission Date: 20190711
  Serious: Yes (Hospitalization, Other)
  Sender: FDA-Public Use
  Company Number: US-DSJP-DSU-2015-118904

PATIENT

DRUGS (7)
  1. PREDNISONE. [Suspect]
     Active Substance: PREDNISONE
     Indication: MALABSORPTION
     Dosage: 20 MG, QD
     Dates: start: 20130104
  2. BENICAR [Suspect]
     Active Substance: OLMESARTAN MEDOXOMIL
     Dosage: 40 MG, QD
     Route: 048
     Dates: start: 20110219, end: 20150302
  3. PREDNISONE. [Suspect]
     Active Substance: PREDNISONE
     Indication: DIARRHOEA
     Dosage: UNK
     Dates: start: 20121121, end: 20130104
  4. PREDNISONE. [Suspect]
     Active Substance: PREDNISONE
     Indication: NAUSEA
     Dosage: 30 MG
  5. PREDNISONE. [Suspect]
     Active Substance: PREDNISONE
     Indication: MICROVILLOUS INCLUSION DISEASE
  6. BENICAR HCT [Suspect]
     Active Substance: HYDROCHLOROTHIAZIDE\OLMESARTAN MEDOXOMIL
     Indication: HYPERTENSION
     Dosage: 40/12.5 MG, QD
     Route: 048
     Dates: start: 20110401, end: 201503
  7. BENICAR [Suspect]
     Active Substance: OLMESARTAN MEDOXOMIL
     Indication: HYPERTENSION
     Dosage: 20 MG, QD
     Dates: start: 20110219, end: 201104

REACTIONS (15)
  - Gallbladder enlargement [Unknown]
  - Glomerulonephritis membranoproliferative [Unknown]
  - Colon adenoma [Recovered/Resolved]
  - Osteopenia [Unknown]
  - Chronic kidney disease [Unknown]
  - Pyelonephritis acute [Unknown]
  - Abdominal lymphadenopathy [Unknown]
  - Acute kidney injury [Unknown]
  - Mesenteric panniculitis [Recovered/Resolved]
  - Haemorrhoids [Unknown]
  - Erosive duodenitis [Unknown]
  - Hiatus hernia [Unknown]
  - Sprue-like enteropathy [Recovering/Resolving]
  - Adrenal insufficiency [Not Recovered/Not Resolved]
  - Steroid diabetes [Unknown]

NARRATIVE: CASE EVENT DATE: 20120901
